FAERS Safety Report 4599034-6 (Version None)
Quarter: 2005Q1

REPORT INFORMATION
  Report Type: 
  Country: None (occurrence: None)
  Receive Date: 20050302
  Receipt Date: 20050211
  Transmission Date: 20050727
  Serious: Yes (Life-Threatening)
  Sender: FDA-Public Use
  Company Number: 2005BI003172

PATIENT
  Age: 26 Year
  Sex: Female
  Weight: 60 kg

DRUGS (2)
  1. NATALIZUMAB (NATALIZUMAB) [Suspect]
     Indication: MULTIPLE SCLEROSIS
     Dosage: 300 MG;QM;IV
     Route: 042
     Dates: start: 20050104, end: 20050211
  2. AVONEX [Concomitant]

REACTIONS (4)
  - ANAPHYLACTIC SHOCK [None]
  - CHILLS [None]
  - CIRCULATORY COLLAPSE [None]
  - FEELING COLD [None]
